FAERS Safety Report 16465048 (Version 2)
Quarter: 2020Q1

REPORT INFORMATION
  Report Type: Spontaneous
  Country: US (occurrence: US)
  Receive Date: 20190621
  Receipt Date: 20200226
  Transmission Date: 20200409
  Serious: Yes (Hospitalization, Other)
  Sender: FDA-Public Use
  Company Number: US-ASTRAZENECA-2019SE88999

PATIENT
  Age: 18298 Day
  Sex: Male
  Weight: 144.7 kg

DRUGS (44)
  1. CHLORTHALIDONE. [Concomitant]
     Active Substance: CHLORTHALIDONE
  2. ZETIA [Concomitant]
     Active Substance: EZETIMIBE
     Dates: start: 20060120
  3. VYTORIN [Concomitant]
     Active Substance: EZETIMIBE\SIMVASTATIN
     Dates: start: 20060204
  4. FISH OIL [Concomitant]
     Active Substance: FISH OIL
     Route: 048
  5. POTASSIUM CITRATE. [Concomitant]
     Active Substance: POTASSIUM CITRATE
     Route: 048
  6. BYETTA [Suspect]
     Active Substance: EXENATIDE
     Dosage: 5 MCG PEN INJ
     Route: 065
     Dates: start: 20130416, end: 201410
  7. ALLOPURINOL. [Concomitant]
     Active Substance: ALLOPURINOL
  8. FLOMAX [Concomitant]
     Active Substance: TAMSULOSIN HYDROCHLORIDE
     Dates: start: 20060204
  9. CIPROFLOXACIN. [Concomitant]
     Active Substance: CIPROFLOXACIN
  10. DOXYCYCLINE. [Concomitant]
     Active Substance: DOXYCYCLINE
  11. FEXOFENADINE [Concomitant]
     Active Substance: FEXOFENADINE HYDROCHLORIDE
     Dates: start: 20070308
  12. LOVAZA [Concomitant]
     Active Substance: OMEGA-3-ACID ETHYL ESTERS
     Dates: start: 20071120
  13. DILTIAZEM. [Concomitant]
     Active Substance: DILTIAZEM
     Dates: start: 20100915
  14. VICTOZA [Concomitant]
     Active Substance: LIRAGLUTIDE
     Dates: start: 20100915
  15. NYSTOP [Concomitant]
     Active Substance: NYSTATIN
     Dates: start: 20141107
  16. BYETTA [Suspect]
     Active Substance: EXENATIDE
     Dosage: 10 MCG/0.04
     Route: 065
     Dates: start: 20131003, end: 201409
  17. AMOX [Concomitant]
     Active Substance: UNSPECIFIED INGREDIENT
     Dosage: 875-125 MG
     Dates: start: 20100413
  18. FUROSEMIDE. [Concomitant]
     Active Substance: FUROSEMIDE
     Dates: start: 20071120
  19. VITAMIN B6 [Concomitant]
     Active Substance: PYRIDOXINE HYDROCHLORIDE
     Route: 048
  20. LEVAQUIN [Concomitant]
     Active Substance: LEVOFLOXACIN
  21. METFORMIN [Concomitant]
     Active Substance: METFORMIN HYDROCHLORIDE
  22. WARFARIN [Concomitant]
     Active Substance: WARFARIN
  23. DIOVAN [Concomitant]
     Active Substance: VALSARTAN
     Dates: start: 20060120
  24. AZITHROMYCIN ANHYDROUS. [Concomitant]
     Active Substance: AZITHROMYCIN ANHYDROUS
     Dates: start: 20070518
  25. FLUCONAZOLE. [Concomitant]
     Active Substance: FLUCONAZOLE
     Route: 048
  26. LOSARTAN. [Concomitant]
     Active Substance: LOSARTAN
  27. PYRIDOXINE [Concomitant]
     Active Substance: PYRIDOXINE
     Route: 048
  28. BYETTA [Suspect]
     Active Substance: EXENATIDE
     Route: 065
     Dates: start: 20140911
  29. LOVENOX [Concomitant]
     Active Substance: ENOXAPARIN SODIUM
  30. CLINDAMYCIN. [Concomitant]
     Active Substance: CLINDAMYCIN
  31. ETODOLAC. [Concomitant]
     Active Substance: ETODOLAC
     Dates: start: 20060131
  32. ENOXAPARIN [Concomitant]
     Active Substance: ENOXAPARIN
     Dates: start: 20141107
  33. BYETTA [Suspect]
     Active Substance: EXENATIDE
     Route: 065
     Dates: start: 20130416, end: 201409
  34. TAZTIA XT [Concomitant]
     Active Substance: DILTIAZEM HYDROCHLORIDE
  35. SPECTRACEF [Concomitant]
     Active Substance: CEFDITOREN PIVOXIL
  36. LEVEMIR [Concomitant]
     Active Substance: INSULIN DETEMIR
     Dates: start: 20140916
  37. HUMALOG [Concomitant]
     Active Substance: INSULIN LISPRO
     Dates: start: 20141107
  38. ALBUTEROL. [Concomitant]
     Active Substance: ALBUTEROL
     Dates: start: 20060120
  39. FLAGYL [Concomitant]
     Active Substance: METRONIDAZOLE\METRONIDAZOLE HYDROCHLORIDE
     Route: 048
  40. POTASSIUM CHLORIDE. [Concomitant]
     Active Substance: POTASSIUM CHLORIDE
  41. INDOMETHACIN. [Concomitant]
     Active Substance: INDOMETHACIN
  42. KETOROLAC [Concomitant]
     Active Substance: KETOROLAC TROMETHAMINE
  43. OMNICEF [Concomitant]
     Active Substance: CEFDINIR
     Dates: start: 20141107
  44. HAWTHORN [Concomitant]
     Active Substance: CRATAEGUS LAEVIGATA FRUIT
     Route: 048

REACTIONS (2)
  - Pancreatic carcinoma [Unknown]
  - Intraductal papillary mucinous neoplasm [Unknown]

NARRATIVE: CASE EVENT DATE: 20140911
